FAERS Safety Report 6855709-7 (Version None)
Quarter: 2010Q3

REPORT INFORMATION
  Report Type: 
  Country: None (occurrence: None)
  Receive Date: 20100719
  Receipt Date: 20090820
  Transmission Date: 20110219
  Serious: No
  Sender: FDA-Public Use
  Company Number: US-KINGPHARMUSA00001-K200901032

PATIENT
  Age: 60 Year
  Sex: Female

DRUGS (5)
  1. LEVOXYL [Suspect]
     Indication: HYPOTHYROIDISM
     Dosage: 100 MCG, QD
     Route: 048
     Dates: start: 20070101, end: 20070101
  2. LEVOXYL [Suspect]
     Dosage: 100 MCG, QPM
     Route: 048
     Dates: start: 20070101, end: 20090301
  3. LEVOXYL [Suspect]
     Dosage: 112 MCG, QPM
     Route: 048
     Dates: start: 20090301
  4. ASACOL [Concomitant]
     Indication: CROHN'S DISEASE
     Dosage: UNK
     Route: 048
  5. MULTI-VITAMIN [Concomitant]
     Indication: CROHN'S DISEASE
     Dosage: UNK
     Route: 048

REACTIONS (3)
  - ABDOMINAL PAIN [None]
  - DIARRHOEA [None]
  - DIZZINESS [None]
